FAERS Safety Report 4360419-4 (Version None)
Quarter: 2004Q2

REPORT INFORMATION
  Report Type: 
  Country: None (occurrence: None)
  Receive Date: 20040514
  Receipt Date: 20040505
  Transmission Date: 20050107
  Serious: Yes (Hospitalization)
  Sender: FDA-Public Use
  Company Number: 2004030218

PATIENT
  Age: 68 Year
  Sex: Female
  Weight: 79.8331 kg

DRUGS (4)
  1. LIPITOR [Suspect]
     Indication: HYPERLIPIDAEMIA
     Dosage: 10 MG (1 IN 1 D)
     Dates: start: 19980101
  2. ATENOLOL [Suspect]
     Indication: HYPERTENSION
     Dosage: 50 MG (1 IN1 D)
     Dates: start: 19980528
  3. ACETYLSALICYLIC ACID SRT [Concomitant]
  4. CALCIUM CHANNEL BLOCKERS (CALCIUM CHANNEL BLOCKERS) [Concomitant]

REACTIONS (5)
  - ADHESION [None]
  - BLOOD PRESSURE SYSTOLIC INCREASED [None]
  - CATARACT [None]
  - HYPERLIPIDAEMIA [None]
  - OEDEMA PERIPHERAL [None]
